FAERS Safety Report 4583220-5 (Version None)
Quarter: 2005Q1

REPORT INFORMATION
  Report Type: 
  Country: None (occurrence: None)
  Receive Date: 20050215
  Receipt Date: 20041202
  Transmission Date: 20050727
  Serious: Yes (Disabling)
  Sender: FDA-Public Use
  Company Number: US-MERCK-0412USA00381

PATIENT
  Age: 37 Year
  Sex: Male

DRUGS (2)
  1. VIOXX [Suspect]
     Indication: POST-TRAUMATIC HEADACHE
     Route: 048
  2. [THERAPY UNSPECIFIED] [Concomitant]
     Indication: BACK DISORDER
     Route: 065

REACTIONS (1)
  - CEREBROVASCULAR ACCIDENT [None]
